FAERS Safety Report 6519781-6 (Version None)
Quarter: 2009Q4

REPORT INFORMATION
  Report Type: 
  Country: None (occurrence: None)
  Receive Date: 20091228
  Receipt Date: 20091228
  Transmission Date: 20100525
  Serious: Yes (Life-Threatening, Hospitalization)
  Sender: FDA-Public Use
  Company Number: None

PATIENT
  Age: 51 Year
  Sex: Male
  Weight: 114 kg

DRUGS (2)
  1. IMIPENEM AND CILASTATIN SODIUM [Suspect]
     Dosage: 500 MG QID IV
     Route: 042
     Dates: start: 20091015, end: 20091023
  2. CEFTAZIDIME [Suspect]
     Dosage: 2 GM TID IV
     Route: 042
     Dates: start: 20091015, end: 20091031

REACTIONS (2)
  - STEVENS-JOHNSON SYNDROME [None]
  - TOXIC EPIDERMAL NECROLYSIS [None]
